FAERS Safety Report 23904859 (Version 5)
Quarter: 2024Q3

REPORT INFORMATION
  Report Type: Report from Study
  Country: CA (occurrence: CA)
  Receive Date: 20240527
  Receipt Date: 20240829
  Transmission Date: 20241017
  Serious: Yes (Other)
  Sender: HLS THERAPEUTICS
  Company Number: CA-HLS-202401325

PATIENT
  Age: 66 Year
  Sex: Male

DRUGS (2)
  1. CLOZARIL [Suspect]
     Active Substance: CLOZAPINE
     Indication: Product used for unknown indication
     Route: 048
  2. CLOZARIL [Suspect]
     Active Substance: CLOZAPINE
     Indication: Product used for unknown indication
     Dosage: 100 MG THREE TIMES DAILY
     Route: 048
     Dates: start: 19950131, end: 20240817

REACTIONS (4)
  - Leukopenia [Unknown]
  - Neutropenia [Unknown]
  - Therapy interrupted [Recovered/Resolved]
  - Seminoma [Unknown]

NARRATIVE: CASE EVENT DATE: 20240816
